FAERS Safety Report 16957957 (Version 1)
Quarter: 2019Q4

REPORT INFORMATION
  Report Type: Spontaneous
  Country: AU (occurrence: AU)
  Receive Date: 20191024
  Receipt Date: 20191024
  Transmission Date: 20200122
  Serious: Yes (Hospitalization, Other)
  Sender: FDA-Public Use
  Company Number: AU-SAMSUNG BIOEPIS-SB-2019-11533

PATIENT
  Age: 36 Year
  Sex: Male

DRUGS (1)
  1. INFLIXIMAB [Suspect]
     Active Substance: INFLIXIMAB
     Indication: CROHN^S DISEASE
     Dosage: UNKNOWN
     Route: 065

REACTIONS (7)
  - Decreased appetite [Recovered/Resolved]
  - Musculoskeletal pain [Recovered/Resolved]
  - Paraspinal abscess [Recovered/Resolved]
  - Extradural abscess [Recovered/Resolved]
  - Staphylococcal infection [Recovered/Resolved]
  - Night sweats [Recovered/Resolved]
  - Swelling [Recovered/Resolved]
